FAERS Safety Report 15750658 (Version 1)
Quarter: 2018Q4

REPORT INFORMATION
  Report Type: Spontaneous
  Country: DE (occurrence: DE)
  Receive Date: 20181221
  Receipt Date: 20181221
  Transmission Date: 20190205
  Serious: Yes (Other)
  Sender: FDA-Public Use
  Company Number: DE-ASTRAZENECA-2018SF68294

PATIENT
  Age: 59 Year
  Sex: Female

DRUGS (3)
  1. NIRAPARIB [Suspect]
     Active Substance: NIRAPARIB
     Route: 048
  2. LYNPARZA [Suspect]
     Active Substance: OLAPARIB
     Indication: CHEMOTHERAPY
     Dosage: 400 MILLIGRAM (8 CAPSULES) ORALLY, TWICE A DAY
     Route: 048
     Dates: start: 201705
  3. LYNPARZA [Suspect]
     Active Substance: OLAPARIB
     Indication: CHEMOTHERAPY
     Dosage: 350 MG (7 CAPSULES) ORALLY, TWICE A DAY
     Route: 048

REACTIONS (2)
  - Tinnitus [Unknown]
  - Haematotoxicity [Unknown]
